FAERS Safety Report 20379324 (Version 1)
Quarter: 2022Q1

REPORT INFORMATION
  Report Type: Spontaneous
  Country: US (occurrence: None)
  Receive Date: 20220126
  Receipt Date: 20220126
  Transmission Date: 20220424
  Serious: Yes (Death)
  Sender: FDA-Public Use
  Company Number: None

PATIENT
  Age: 60 Year
  Sex: Male

DRUGS (8)
  1. MYCOPHENOLIC ACID [Suspect]
     Active Substance: MYCOPHENOLIC ACID
     Indication: Renal transplant
     Dosage: FREQUENCY : TWICE A DAY;?
     Route: 048
     Dates: start: 202101, end: 202101
  2. AMIODARONE [Concomitant]
     Active Substance: AMIODARONE
  3. FAMOTIDINE [Concomitant]
     Active Substance: FAMOTIDINE
  4. ALENDRONATE [Concomitant]
     Active Substance: ALENDRONATE SODIUM
  5. OXYCODONE [Concomitant]
     Active Substance: OXYCODONE
  6. FUROSEMIDE [Concomitant]
     Active Substance: FUROSEMIDE
  7. TACROLIMUS [Concomitant]
     Active Substance: TACROLIMUS
  8. PREDNISONE [Concomitant]
     Active Substance: PREDNISONE

REACTIONS (1)
  - Death [None]

NARRATIVE: CASE EVENT DATE: 20220121
